FAERS Safety Report 17913066 (Version 1)
Quarter: 2020Q2

REPORT INFORMATION
  Report Type: Spontaneous
  Country: FR (occurrence: FR)
  Receive Date: 20200618
  Receipt Date: 20200618
  Transmission Date: 20200714
  Serious: Yes (Hospitalization)
  Sender: FDA-Public Use
  Company Number: FR-TEVA-2020-FR-1788363

PATIENT
  Age: 63 Year
  Sex: Male
  Weight: 57 kg

DRUGS (16)
  1. ZOPICLONE [Concomitant]
     Active Substance: ZOPICLONE
  2. PERINDOPRIL [Concomitant]
     Active Substance: PERINDOPRIL
  3. PEMBROLIZUMAB. [Suspect]
     Active Substance: PEMBROLIZUMAB
     Indication: LUNG ADENOCARCINOMA
     Route: 042
     Dates: start: 20200113
  4. ACIDE FOLIQUE [Concomitant]
     Active Substance: FOLIC ACID
  5. QUETIAPINE. [Concomitant]
     Active Substance: QUETIAPINE
  6. CHLORHYDRATE DE TRAMADOL [Concomitant]
     Active Substance: TRAMADOL HYDROCHLORIDE
  7. DOMPERIDONE [Concomitant]
     Active Substance: DOMPERIDONE
  8. PEMETREXED. [Suspect]
     Active Substance: PEMETREXED
     Indication: LUNG ADENOCARCINOMA
     Route: 042
     Dates: start: 20200113
  9. DAFALGAN [Concomitant]
     Active Substance: ACETAMINOPHEN
  10. PREGABALINE [Concomitant]
     Active Substance: PREGABALIN
  11. SUCRALFATE. [Concomitant]
     Active Substance: SUCRALFATE
  12. CHLORHYDRATE DE NEFOPAM [Concomitant]
     Active Substance: NEFOPAM HYDROCHLORIDE
  13. CARBOPLATIN. [Suspect]
     Active Substance: CARBOPLATIN
     Indication: LUNG ADENOCARCINOMA
     Route: 042
     Dates: start: 20200113
  14. PANTOPRAZOLE [Concomitant]
     Active Substance: PANTOPRAZOLE
  15. ALPRAZOLAM. [Concomitant]
     Active Substance: ALPRAZOLAM
  16. BISOPROLOL (FUMARATE ACIDE DE) [Concomitant]
     Active Substance: BISOPROLOL FUMARATE
     Dosage: 2.5 MG
     Route: 048

REACTIONS (2)
  - Hypokalaemia [Recovered/Resolved]
  - Pancytopenia [Recovered/Resolved]

NARRATIVE: CASE EVENT DATE: 20200124
